FAERS Safety Report 4763500-0 (Version None)
Quarter: 2005Q3

REPORT INFORMATION
  Report Type: 
  Country: None (occurrence: None)
  Receive Date: 20050901
  Receipt Date: 20050715
  Transmission Date: 20060218
  Serious: No
  Sender: FDA-Public Use
  Company Number: 200511419BWH

PATIENT
  Sex: Male

DRUGS (4)
  1. LEVITRA [Suspect]
     Indication: ERECTILE DYSFUNCTION
     Dosage: SEE IMAGE
     Route: 048
     Dates: start: 20050301
  2. LEVITRA [Suspect]
     Indication: ERECTILE DYSFUNCTION
     Dosage: SEE IMAGE
     Route: 048
     Dates: start: 20050701
  3. VIAGRA [Concomitant]
  4. CIALIS [Concomitant]

REACTIONS (10)
  - ARTHRALGIA [None]
  - COUGH [None]
  - FATIGUE [None]
  - INCREASED VISCOSITY OF BRONCHIAL SECRETION [None]
  - INFLUENZA LIKE ILLNESS [None]
  - MALAISE [None]
  - MYALGIA [None]
  - PHARYNGOLARYNGEAL PAIN [None]
  - SINUSITIS [None]
  - SNEEZING [None]
